FAERS Safety Report 9355950 (Version 2)
Quarter: 2013Q3

REPORT INFORMATION
  Report Type: Spontaneous
  Country: US (occurrence: US)
  Receive Date: 20130619
  Receipt Date: 20130701
  Transmission Date: 20140515
  Serious: Yes (Death, Hospitalization, Other)
  Sender: FDA-Public Use
  Company Number: US-GILEAD-2013-0077219

PATIENT
  Age: 50 Year
  Sex: Female

DRUGS (2)
  1. LETAIRIS [Suspect]
     Indication: PULMONARY HYPERTENSION
     Dosage: 10 MG, UNK
     Route: 048
     Dates: start: 20111020
  2. LETAIRIS [Suspect]
     Indication: SCLERODERMA

REACTIONS (2)
  - Respiratory failure [Fatal]
  - Metastatic neoplasm [Fatal]
